FAERS Safety Report 17189055 (Version 1)
Quarter: 2019Q4

REPORT INFORMATION
  Report Type: Report from Study
  Country: None (occurrence: CO)
  Receive Date: 20191223
  Receipt Date: 20191223
  Transmission Date: 20200122
  Serious: Yes (Hospitalization, Other)
  Sender: FDA-Public Use
  Company Number: CO-ABBVIE-16K-036-3058243-00

PATIENT
  Age: 76 Year
  Sex: Female
  Weight: 53 kg

DRUGS (1)
  1. IMBRUVICA [Suspect]
     Active Substance: IBRUTINIB
     Indication: MANTLE CELL LYMPHOMA
     Route: 048
     Dates: start: 20160323, end: 20161121

REACTIONS (12)
  - Urinary tract infection [Recovering/Resolving]
  - Fatigue [Unknown]
  - Angina pectoris [Recovering/Resolving]
  - Pyrexia [Recovering/Resolving]
  - Tachycardia [Recovering/Resolving]
  - Arthralgia [Unknown]
  - Incorrect dose administered [Unknown]
  - Off label use [Unknown]
  - Hypoaesthesia [Recovering/Resolving]
  - Somnolence [Unknown]
  - Oropharyngeal discomfort [Unknown]
  - Arrhythmia [Unknown]

NARRATIVE: CASE EVENT DATE: 20160323
